FAERS Safety Report 15111233 (Version 3)
Quarter: 2018Q4

REPORT INFORMATION
  Report Type: Spontaneous
  Country: JP (occurrence: JP)
  Receive Date: 20180705
  Receipt Date: 20181019
  Transmission Date: 20190204
  Serious: Yes (Other)
  Sender: FDA-Public Use
  Company Number: JP-LUNDBECK-DKLU2050905

PATIENT
  Age: 84 Year
  Sex: Male

DRUGS (5)
  1. PARKISTON [Concomitant]
     Active Substance: CARBIDOPA\LEVODOPA
     Indication: PRODUCT USED FOR UNKNOWN INDICATION
     Route: 065
  2. PARKISTON [Concomitant]
     Active Substance: CARBIDOPA\LEVODOPA
     Route: 065
  3. PARKISTON [Concomitant]
     Active Substance: CARBIDOPA\LEVODOPA
     Route: 065
  4. PARKISTON [Concomitant]
     Active Substance: CARBIDOPA\LEVODOPA
     Route: 065
     Dates: start: 20180307
  5. DOPS [Suspect]
     Active Substance: DROXIDOPA
     Indication: PARKINSON^S DISEASE
     Route: 048
     Dates: start: 20180308

REACTIONS (4)
  - Musculoskeletal stiffness [Recovering/Resolving]
  - Hallucination [Recovering/Resolving]
  - Akinesia [Recovering/Resolving]
  - Hallucination, auditory [Recovering/Resolving]

NARRATIVE: CASE EVENT DATE: 20180314
